FAERS Safety Report 21564564 (Version 1)
Quarter: 2022Q4

REPORT INFORMATION
  Report Type: Report from Study
  Country: AT (occurrence: AT)
  Receive Date: 20221108
  Receipt Date: 20221108
  Transmission Date: 20230113
  Serious: Yes (Hospitalization)
  Sender: FDA-Public Use
  Company Number: AT-ABBVIE-4188743

PATIENT
  Age: 23 Year
  Sex: Female

DRUGS (2)
  1. HUMIRA [Suspect]
     Active Substance: ADALIMUMAB
     Indication: Colitis ulcerative
     Route: 058
     Dates: start: 20211006, end: 202207
  2. CORTISONE [Concomitant]
     Active Substance: CORTISONE
     Indication: Inflammatory marker increased
     Route: 065

REACTIONS (3)
  - Inflammatory marker increased [Recovered/Resolved]
  - Anal incontinence [Unknown]
  - Drug ineffective [Recovered/Resolved]
